FAERS Safety Report 6761436-7 (Version None)
Quarter: 2010Q2

REPORT INFORMATION
  Report Type: 
  Country: None (occurrence: None)
  Receive Date: 20100607
  Receipt Date: 20100520
  Transmission Date: 20101027
  Serious: Yes (Other)
  Sender: FDA-Public Use
  Company Number: COGR-2010-01-31

PATIENT
  Age: 55 Year
  Sex: Male

DRUGS (3)
  1. PERIOGARD [Suspect]
     Indication: GINGIVITIS
     Dosage: 10 ML/2XDAY/ORAL; USED ONCE
     Route: 048
  2. PLAVIX [Concomitant]
  3. SALOSPIR (ACETYLSALICYLIC ACID) [Concomitant]

REACTIONS (4)
  - DISCOMFORT [None]
  - DYSPNOEA [None]
  - HYPERSENSITIVITY [None]
  - OEDEMA MOUTH [None]
